FAERS Safety Report 9871324 (Version 2)
Quarter: 2014Q2

REPORT INFORMATION
  Report Type: Spontaneous
  Country: US (occurrence: US)
  Receive Date: 20140205
  Receipt Date: 20140409
  Transmission Date: 20141212
  Serious: Yes (Hospitalization)
  Sender: FDA-Public Use
  Company Number: US-BAYER-2014-017712

PATIENT
  Age: 41 Year
  Sex: Female

DRUGS (16)
  1. MIRENA [Suspect]
     Indication: MENORRHAGIA
     Dosage: 20 MCG/24HR, CONT
     Route: 015
     Dates: start: 20101101, end: 20120224
  2. NOVOLIN R [Concomitant]
     Indication: DIABETES MELLITUS
     Dosage: UNK
     Dates: start: 1991
  3. NOVOLIN N [Concomitant]
     Indication: DIABETES MELLITUS
     Dosage: UNK
     Route: 058
     Dates: start: 1991
  4. SIMVASTATIN [Concomitant]
     Indication: BLOOD CHOLESTEROL INCREASED
     Dosage: 20 MG; 40 MG
     Route: 048
  5. LISINOPRIL [Concomitant]
     Indication: HYPERTENSION
     Dosage: 5 MG, UNK
     Route: 048
  6. NORCO [Concomitant]
     Indication: MENORRHAGIA
     Dosage: UNK
     Dates: start: 2004
  7. NORCO [Concomitant]
     Indication: PAIN
  8. FLUTICASONE PROPIONATE [Concomitant]
     Indication: MULTIPLE ALLERGIES
     Dosage: 50 MCG
     Route: 048
  9. AMLODIPINE BESYLATE [Concomitant]
     Indication: HYPERTENSION
     Dosage: 10 MG, UNK
     Route: 048
  10. MIRAPEX [Concomitant]
     Indication: RESTLESS LEGS SYNDROME
     Dosage: 0.25 MG, UNK
     Route: 048
  11. ASPIRIN [Concomitant]
     Dosage: 81 MG, UNK
  12. LANTUS [Concomitant]
     Indication: DIABETES MELLITUS
     Route: 058
  13. NOVOLOG [Concomitant]
     Indication: DIABETES MELLITUS
     Route: 058
  14. HUMULIN N [Concomitant]
     Indication: DIABETES MELLITUS
     Route: 058
  15. PLAVIX [Concomitant]
     Dosage: 75 MG, UNK
     Route: 048
  16. CARVEDILOL [Concomitant]
     Indication: HYPERTENSION
     Dosage: 3.125 MG AND 6.25 MG
     Route: 048

REACTIONS (6)
  - Procedural pain [None]
  - Pain [None]
  - Injury [None]
  - Emotional distress [None]
  - Device dislocation [None]
  - Medical device discomfort [None]
